FAERS Safety Report 18594317 (Version 1)
Quarter: 2020Q4

REPORT INFORMATION
  Report Type: Spontaneous
  Country: ES (occurrence: ES)
  Receive Date: 20201209
  Receipt Date: 20201209
  Transmission Date: 20210114
  Serious: Yes (Other)
  Sender: FDA-Public Use
  Company Number: ES-AUROBINDO-AUR-APL-2020-060426

PATIENT
  Age: 54 Year
  Sex: Female

DRUGS (1)
  1. OLMESARTAN 40 MG [Suspect]
     Active Substance: OLMESARTAN
     Indication: HYPERTENSION
     Dosage: 40 MILLIGRAM, ONCE A DAY
     Route: 065

REACTIONS (3)
  - Weight decreased [Recovered/Resolved]
  - Asthenia [Recovered/Resolved]
  - Drug-induced liver injury [Recovered/Resolved]
